FAERS Safety Report 24393930 (Version 1)
Quarter: 2024Q4

REPORT INFORMATION
  Report Type: Other
  Country: CN (occurrence: CN)
  Receive Date: 20241003
  Receipt Date: 20241003
  Transmission Date: 20250115
  Serious: Yes (Death, Hospitalization)
  Sender: BIONPHARMA
  Company Number: CN-Bion-013951

PATIENT
  Age: 28 Year
  Sex: Male

DRUGS (12)
  1. DEXAMETHASONE [Suspect]
     Active Substance: DEXAMETHASONE
     Indication: B precursor type acute leukaemia
  2. IDARUBICIN [Concomitant]
     Active Substance: IDARUBICIN
     Indication: B precursor type acute leukaemia
  3. VINDESINE [Concomitant]
     Active Substance: VINDESINE
     Indication: B precursor type acute leukaemia
  4. CYCLOPHOSPHAMIDE [Concomitant]
     Active Substance: CYCLOPHOSPHAMIDE
     Indication: B precursor type acute leukaemia
  5. DOXORUBICIN [Concomitant]
     Active Substance: DOXORUBICIN
     Indication: B precursor type acute leukaemia
  6. VINCRISTINE [Concomitant]
     Active Substance: VINCRISTINE
     Indication: B precursor type acute leukaemia
  7. METHOTREXATE [Concomitant]
     Active Substance: METHOTREXATE
     Indication: B precursor type acute leukaemia
  8. ASPARAGINASE [Concomitant]
     Active Substance: ASPARAGINASE
     Indication: B precursor type acute leukaemia
  9. DEXAMETHASONE [Suspect]
     Active Substance: DEXAMETHASONE
     Indication: Minimal residual disease
  10. CYCLOPHOSPHAMIDE [Concomitant]
     Active Substance: CYCLOPHOSPHAMIDE
     Indication: Minimal residual disease
  11. DOXORUBICIN [Concomitant]
     Active Substance: DOXORUBICIN
     Indication: Minimal residual disease
  12. VINCRISTINE [Concomitant]
     Active Substance: VINCRISTINE
     Indication: Minimal residual disease

REACTIONS (1)
  - Drug ineffective [Fatal]
